FAERS Safety Report 5787238-6 (Version None)
Quarter: 2008Q2

REPORT INFORMATION
  Report Type: 
  Country: None (occurrence: None)
  Receive Date: 20080625
  Receipt Date: 20070820
  Transmission Date: 20081010
  Serious: No
  Sender: FDA-Public Use
  Company Number: US-ASTRAZENECA-2007UW19974

PATIENT
  Age: 77 Year
  Sex: Female
  Weight: 69.9 kg

DRUGS (12)
  1. PULMICORT RESPULES [Suspect]
     Indication: PRODUCTIVE COUGH
     Route: 045
  2. FOSAMAX [Concomitant]
  3. ATENOLOL [Concomitant]
  4. TRIAMTERENE AND HYDROCHLOROTHIAZIDE [Concomitant]
     Dosage: 70/50 MG
  5. VITAMIN A [Concomitant]
  6. VITAMIN B [Concomitant]
  7. VITAMIN E [Concomitant]
  8. RESTASIS [Concomitant]
  9. POTASSIUM CHLORIDE [Concomitant]
  10. ZOCOR [Concomitant]
     Dosage: 1/2 OF 20 MG TAB.
  11. PENPASA [Concomitant]
     Dosage: 250 MG 2 CAPSULES BID
  12. HYDROCORTISONE [Concomitant]
     Dosage: LIQUID ENEMA

REACTIONS (2)
  - INTENTIONAL DRUG MISUSE [None]
  - RASH [None]
